FAERS Safety Report 22118126 (Version 1)
Quarter: 2023Q1

REPORT INFORMATION
  Report Type: Spontaneous
  Country: AU (occurrence: AU)
  Receive Date: 20230321
  Receipt Date: 20230321
  Transmission Date: 20230418
  Serious: Yes (Other)
  Sender: FDA-Public Use
  Company Number: AU-BRISTOL-MYERS SQUIBB COMPANY-2023-037797

PATIENT
  Age: 52 Year
  Sex: Male

DRUGS (1)
  1. NIVOLUMAB [Suspect]
     Active Substance: NIVOLUMAB
     Indication: Malignant melanoma
     Dosage: RECEIVED SIX CYCLES
     Route: 042
     Dates: start: 202111

REACTIONS (3)
  - Immune-mediated hypothyroidism [Unknown]
  - Immune-mediated dermatitis [Unknown]
  - Myelitis transverse [Recovered/Resolved]
